FAERS Safety Report 17426790 (Version 1)
Quarter: 2020Q1

REPORT INFORMATION
  Report Type: Spontaneous
  Country: US (occurrence: US)
  Receive Date: 20200218
  Receipt Date: 20200218
  Transmission Date: 20200409
  Serious: No
  Sender: FDA-Public Use
  Company Number: NVSC2020US041420

PATIENT
  Age: 40 Year
  Sex: Female

DRUGS (5)
  1. CYCLOSPORINE. [Suspect]
     Active Substance: CYCLOSPORINE
     Dosage: UNK
     Route: 065
     Dates: start: 201011, end: 201302
  2. DAPSONE. [Concomitant]
     Active Substance: DAPSONE
     Indication: PRODUCT USED FOR UNKNOWN INDICATION
     Dosage: UNK
     Route: 065
     Dates: start: 201011, end: 201302
  3. CYCLOSPORINE. [Suspect]
     Active Substance: CYCLOSPORINE
     Dosage: UNK
     Route: 042
     Dates: start: 200807, end: 200808
  4. CYCLOSPORINE. [Suspect]
     Active Substance: CYCLOSPORINE
     Dosage: 200 MG
     Route: 065
     Dates: start: 200908, end: 201002
  5. CYCLOSPORINE. [Suspect]
     Active Substance: CYCLOSPORINE
     Indication: PALMOPLANTAR PUSTULOSIS
     Dosage: 400 MG
     Route: 065
     Dates: start: 200806, end: 200807

REACTIONS (4)
  - Product use in unapproved indication [Unknown]
  - Pain [Unknown]
  - Oesophagitis [Unknown]
  - Blood creatinine increased [Unknown]
